FAERS Safety Report 23223202 (Version 1)
Quarter: 2023Q4

REPORT INFORMATION
  Report Type: Spontaneous
  Country: BR (occurrence: BR)
  Receive Date: 20231123
  Receipt Date: 20231123
  Transmission Date: 20240110
  Serious: Yes (Other)
  Sender: FDA-Public Use
  Company Number: BR-SA-SAC20230123000046

PATIENT

DRUGS (16)
  1. HYDROXYCHLOROQUINE [Suspect]
     Active Substance: HYDROXYCHLOROQUINE
     Indication: Arthritis
     Dosage: UNK, QD COATED TABLET
     Route: 065
  2. HYDROXYCHLOROQUINE [Suspect]
     Active Substance: HYDROXYCHLOROQUINE
     Indication: Rheumatic disorder
  3. HYDROXYCHLOROQUINE [Suspect]
     Active Substance: HYDROXYCHLOROQUINE
     Indication: Spinal disorder
  4. HYDROXYCHLOROQUINE [Suspect]
     Active Substance: HYDROXYCHLOROQUINE
     Indication: Systemic lupus erythematosus
  5. PREDNISONE [Suspect]
     Active Substance: PREDNISONE
     Dosage: UNK
     Dates: start: 2022
  6. OLMESARTAN [Concomitant]
     Active Substance: OLMESARTAN
     Indication: Blood pressure measurement
     Dosage: 40 MG
  7. GLICLAZIDE [Concomitant]
     Active Substance: GLICLAZIDE
     Indication: Diabetes mellitus
     Dosage: UNK UNK, QD
  8. CHLORTHALIDONE [Concomitant]
     Active Substance: CHLORTHALIDONE
     Indication: Diuretic therapy
     Dosage: UNK UNK, QD
  9. TORVAL [VALSARTAN] [Concomitant]
     Indication: Sleep disorder therapy
     Dosage: UNK, QD, TORVAL CR 300
  10. ALPRAZOLAM [Concomitant]
     Active Substance: ALPRAZOLAM
     Indication: Insomnia
     Dosage: UNK UNK, QD
  11. ADVIL [Concomitant]
     Active Substance: IBUPROFEN
     Indication: Back pain
     Dosage: UNK MG
  12. LEVOTHYROXINE SODIUM [Concomitant]
     Active Substance: LEVOTHYROXINE SODIUM
     Indication: Thyroid disorder
     Dosage: UNK UNK, QD
  13. GLIFAGE [METFORMIN HYDROCHLORIDE] [Concomitant]
     Indication: Diabetes mellitus
     Dosage: UNK UNK, BID
  14. FLUOXETINE [Concomitant]
     Active Substance: FLUOXETINE HYDROCHLORIDE
     Dosage: 1 DF, QD
  15. DIOSMIN\HESPERIDIN [Concomitant]
     Active Substance: DIOSMIN\HESPERIDIN
     Indication: Limb discomfort
     Dosage: 450 + 50 MG (~450 + 50 MG FOR LEGS AND FOR CIRCULATION)
  16. PREGABALIN [Concomitant]
     Active Substance: PREGABALIN
     Indication: Back pain
     Dosage: UNK

REACTIONS (17)
  - Rheumatoid arthritis [Unknown]
  - Systemic lupus erythematosus [Recovering/Resolving]
  - Feeling cold [Unknown]
  - Arthralgia [Unknown]
  - Liver disorder [Unknown]
  - Bursitis [Unknown]
  - Tendonitis [Unknown]
  - Hyperhidrosis [Unknown]
  - Cyst [Unknown]
  - Intervertebral disc protrusion [Unknown]
  - Illness [Unknown]
  - Decreased appetite [Unknown]
  - Palpitations [Unknown]
  - Diarrhoea [Unknown]
  - Hypoglycaemia [Unknown]
  - Tremor [Unknown]
  - Product use in unapproved indication [Unknown]
